FAERS Safety Report 7646537-3 (Version None)
Quarter: 2011Q3

REPORT INFORMATION
  Report Type: 
  Country: None (occurrence: None)
  Receive Date: 20110725
  Receipt Date: 20110707
  Transmission Date: 20111222
  Serious: Yes (Other)
  Sender: FDA-Public Use
  Company Number: JHP201100352

PATIENT
  Age: 58 Year
  Sex: Female

DRUGS (11)
  1. FAMOTIDINE [Concomitant]
  2. FENTANYL [Concomitant]
  3. THIOPENTAL (THIOPENTAL SODIUM) [Concomitant]
  4. INSULIN (INSULIN) [Concomitant]
  5. SUCCINYLCHOLINE CHLORIDE [Concomitant]
  6. LASIX [Concomitant]
  7. VECURONIUM BROMIDE [Concomitant]
  8. DANTROLENE SODIUM [Suspect]
     Indication: HYPERTHERMIA MALIGNANT
     Dosage: 200 MG, TOTAL, INTRAVENOUS
     Route: 042
  9. DEXTROSE 5% [Concomitant]
  10. ENFLURANE [Concomitant]
  11. BICARBONATE (SODIUM BICARBONATE) [Concomitant]

REACTIONS (2)
  - HYPERKALAEMIA [None]
  - CARDIAC DISORDER [None]
